FAERS Safety Report 10540364 (Version 1)
Quarter: 2014Q4

REPORT INFORMATION
  Report Type: Spontaneous
  Country: FR (occurrence: FR)
  Receive Date: 20141024
  Receipt Date: 20141024
  Transmission Date: 20150529
  Serious: Yes (Disabling)
  Sender: FDA-Public Use
  Company Number: PHHY2014FR137171

PATIENT
  Age: 77 Year
  Sex: Female

DRUGS (7)
  1. ZOMETA [Suspect]
     Active Substance: ZOLEDRONIC ACID
     Indication: PRODUCT USED FOR UNKNOWN INDICATION
     Dosage: EVERY 04 WEEKS
     Route: 042
     Dates: start: 20140812
  2. ALKERAN [Suspect]
     Active Substance: MELPHALAN
     Indication: PLASMA CELL MYELOMA
     Dosage: 12 MG, QD
     Route: 048
     Dates: start: 20140805, end: 20140808
  3. NOVONORM [Suspect]
     Active Substance: REPAGLINIDE
     Indication: DIABETES MELLITUS
     Route: 048
     Dates: start: 20140826
  4. CORTANCYL [Suspect]
     Active Substance: PREDNISONE
     Indication: PLASMA CELL MYELOMA
     Dosage: 80 MG, QD
     Route: 048
     Dates: start: 20140805, end: 20140808
  5. VELCADE [Suspect]
     Active Substance: BORTEZOMIB
     Indication: PLASMA CELL MYELOMA
     Dosage: 1.8 MG
     Route: 058
     Dates: start: 20140805
  6. ESOMEPRAZOLE [Suspect]
     Active Substance: ESOMEPRAZOLE
     Indication: PRODUCT USED FOR UNKNOWN INDICATION
     Dosage: 20 MG, QD
     Route: 048
     Dates: start: 20140805
  7. ZELITREX [Suspect]
     Active Substance: VALACYCLOVIR HYDROCHLORIDE
     Indication: PROPHYLAXIS
     Dosage: 500 MG, BID
     Route: 048
     Dates: start: 20140805

REACTIONS (3)
  - Pulmonary fibrosis [Not Recovered/Not Resolved]
  - Interstitial lung disease [Not Recovered/Not Resolved]
  - Cardiac failure [Recovered/Resolved]

NARRATIVE: CASE EVENT DATE: 20140901
